FAERS Safety Report 17106273 (Version 1)
Quarter: 2019Q4

REPORT INFORMATION
  Report Type: Spontaneous
  Country: US (occurrence: US)
  Receive Date: 20191203
  Receipt Date: 20191203
  Transmission Date: 20200122
  Serious: No
  Sender: FDA-Public Use
  Company Number: US-TEVA-2019-US-1144939

PATIENT
  Sex: Male

DRUGS (1)
  1. MUPIROCIN OINTMENT [Suspect]
     Active Substance: MUPIROCIN
     Indication: RASH
     Dates: start: 2019

REACTIONS (2)
  - Therapeutic product effect delayed [Unknown]
  - Product prescribing error [Unknown]

NARRATIVE: CASE EVENT DATE: 2019
